FAERS Safety Report 8812221 (Version 1)
Quarter: 2012Q4

REPORT INFORMATION
  Report Type: Spontaneous
  Country: DK (occurrence: None)
  Receive Date: 20120925
  Receipt Date: 20120925
  Transmission Date: 20130627
  Serious: Yes (Other)
  Sender: FDA-Public Use
  Company Number: 2012MA011422

PATIENT
  Age: 57 Year
  Sex: Female

DRUGS (3)
  1. CITALOPRAM HYDROBROMIDE [Suspect]
     Indication: ANXIETY
     Route: 048
  2. LANSOPRAZOLE [Concomitant]
  3. SIMVASTATIN [Concomitant]

REACTIONS (7)
  - Withdrawal syndrome [None]
  - Headache [None]
  - Diarrhoea [None]
  - Night sweats [None]
  - Pain [None]
  - Chills [None]
  - Cold sweat [None]
